FAERS Safety Report 9145883 (Version 1)
Quarter: 2013Q1

REPORT INFORMATION
  Report Type: Spontaneous
  Country: US (occurrence: US)
  Receive Date: 20130307
  Receipt Date: 20130307
  Transmission Date: 20140127
  Serious: No
  Sender: FDA-Public Use
  Company Number: US-009507513-1303USA002883

PATIENT
  Sex: Female

DRUGS (7)
  1. BOCEPREVIR [Suspect]
     Indication: CHRONIC HEPATITIS C
     Dosage: UNK, TID
     Dates: start: 20110907, end: 20120803
  2. RIBAVIRIN [Suspect]
     Indication: CHRONIC HEPATITIS C
     Dosage: 800 MG, QD
     Dates: start: 20110805
  3. RIBAVIRIN [Suspect]
     Dosage: 400 MG, QD
     Dates: start: 20120418, end: 20120803
  4. PEGINTERFERON ALFA-2A [Suspect]
     Indication: CHRONIC HEPATITIS C
     Dosage: 135 MICROGRAM, QW
     Dates: start: 20110805
  5. PEGINTERFERON ALFA-2A [Suspect]
     Dosage: 180 MICROGRAM, QW
     Dates: start: 20110826, end: 20120803
  6. CYCLOSPORINE [Concomitant]
  7. PROGRAF [Concomitant]

REACTIONS (8)
  - Ascites [Unknown]
  - Renal impairment [Unknown]
  - Hepatic enzyme increased [Unknown]
  - White blood cell count decreased [Unknown]
  - Anaemia [Unknown]
  - Nausea [Unknown]
  - Red blood cell count decreased [Unknown]
  - Haemoglobin decreased [Unknown]
